FAERS Safety Report 6426529-2 (Version None)
Quarter: 2009Q4

REPORT INFORMATION
  Report Type: 
  Country: None (occurrence: None)
  Receive Date: 20091030
  Receipt Date: 20091019
  Transmission Date: 20100525
  Serious: Yes (Hospitalization)
  Sender: FDA-Public Use
  Company Number: CIP09002902

PATIENT
  Age: 56 Year
  Sex: Female

DRUGS (9)
  1. ACTONEL [Suspect]
     Indication: OSTEOPOROSIS
     Dosage: 17.5 MG ONCE WEEKLY, ORAL
     Route: 048
     Dates: start: 20090402, end: 20090702
  2. CEFAMEZIN           /00288502/ (CEFAZOLIN SODIUM) [Concomitant]
  3. CEFDINIR [Concomitant]
  4. PIPERACILLIN SODIUM [Concomitant]
  5. LEVOFLOXACIN [Concomitant]
  6. CLARITHROMYCIN [Concomitant]
  7. CEFCAPENE PIVOXIL HYDROCHLORIDE [Concomitant]
  8. MOXIFLOXACIN HYDROCHLORIDE [Concomitant]
  9. PREDONINE                   /00016201/ (PREDNISOLONE) [Concomitant]

REACTIONS (9)
  - CONDITION AGGRAVATED [None]
  - GINGIVAL PAIN [None]
  - GINGIVAL SWELLING [None]
  - ORAL INFECTION [None]
  - OSTEOMYELITIS [None]
  - POLYARTERITIS NODOSA [None]
  - PURULENCE [None]
  - SINUSITIS [None]
  - TOOTH EXTRACTION [None]
